FAERS Safety Report 8815543 (Version 3)
Quarter: 2013Q2

REPORT INFORMATION
  Report Type: Report from Study
  Country: GR (occurrence: GR)
  Receive Date: 20120928
  Receipt Date: 20130604
  Transmission Date: 20140414
  Serious: Yes (Hospitalization)
  Sender: FDA-Public Use
  Company Number: GR-ABBOTT-12P-066-0984035-00

PATIENT
  Age: 45 Year
  Sex: Female
  Weight: 78 kg

DRUGS (12)
  1. ZEMPLAR [Suspect]
     Indication: RENAL FAILURE CHRONIC
     Route: 042
     Dates: start: 20120628, end: 20120818
  2. ZEMPLAR [Suspect]
     Indication: HYPERPARATHYROIDISM SECONDARY
  3. OMACOR [Concomitant]
     Indication: HYPERLIPIDAEMIA
     Route: 048
  4. T4 [Concomitant]
     Indication: HYPOTHYROIDISM
     Route: 048
  5. LYRICA [Concomitant]
     Indication: NEURALGIA
     Route: 048
  6. RIVOTRIL [Concomitant]
     Indication: NEURALGIA
     Route: 048
  7. CLOPIDOGREL [Concomitant]
     Indication: HAEMODIALYSIS
  8. FOLIC ACID [Concomitant]
     Indication: ANAEMIA
     Route: 048
  9. NOVORAPID [Concomitant]
     Indication: DIABETES MELLITUS
     Route: 058
  10. LANTUS [Concomitant]
     Indication: DIABETES MELLITUS
  11. RENAGEL [Concomitant]
     Indication: HYPERPHOSPHATAEMIA
     Route: 048
  12. PENRAZOL [Concomitant]
     Indication: ABDOMINAL PAIN UPPER
     Route: 048
     Dates: start: 20120917

REACTIONS (9)
  - Pancreatic pseudocyst [Recovering/Resolving]
  - Ovarian cyst [Not Recovered/Not Resolved]
  - Pancreatic pseudocyst [Recovering/Resolving]
  - Abdominal pain [Recovered/Resolved]
  - Pyrexia [Recovered/Resolved]
  - Pyrexia [Recovered/Resolved]
  - Large intestine polyp [Unknown]
  - Haemorrhoids [Unknown]
  - Weight decreased [Recovering/Resolving]
